FAERS Safety Report 9995599 (Version 1)
Quarter: 2014Q1

REPORT INFORMATION
  Report Type: Spontaneous
  Country: US (occurrence: US)
  Receive Date: 20140311
  Receipt Date: 20140311
  Transmission Date: 20141002
  Serious: Yes (Other)
  Sender: FDA-Public Use
  Company Number: US-BAYER-2014-032826

PATIENT
  Sex: Male

DRUGS (6)
  1. ACETYLSALICYLIC ACID({=100 MG) [Suspect]
     Dosage: UNK
  2. ACETYLSALICYLIC ACID({=100 MG) [Suspect]
     Dosage: 20.25 MG, UNK
  3. ACETYLSALICYLIC ACID({=100 MG) [Suspect]
     Dosage: 162 MG, UNK
  4. BUDESONIDE W/FORMOTEROL FUMARATE [Concomitant]
  5. METHYLPREDNISOLONE [Concomitant]
     Dosage: 16 MG, QD
  6. METHYLPREDNISOLONE [Concomitant]
     Dosage: 8 MG, QOD

REACTIONS (2)
  - Analgesic asthma syndrome [None]
  - Type I hypersensitivity [None]
